FAERS Safety Report 12406194 (Version 2)
Quarter: 2017Q2

REPORT INFORMATION
  Report Type: Spontaneous
  Country: US (occurrence: US)
  Receive Date: 20160526
  Receipt Date: 20170519
  Transmission Date: 20170830
  Serious: No
  Sender: FDA-Public Use
  Company Number: US-BAUSCH-BL-2016-006401

PATIENT
  Sex: Male

DRUGS (4)
  1. LISINOPRIL. [Concomitant]
     Active Substance: LISINOPRIL
     Indication: PRODUCT USED FOR UNKNOWN INDICATION
     Route: 048
     Dates: start: 2015
  2. HYOSCYAMINE. [Concomitant]
     Active Substance: HYOSCYAMINE
     Indication: PRODUCT USED FOR UNKNOWN INDICATION
     Route: 048
  3. IPRATROPIUM BROMIDE NASAL SOLUTION 0.03% [Suspect]
     Active Substance: IPRATROPIUM BROMIDE
     Indication: HYPERSENSITIVITY
     Dosage: 1 SPRAY IN EACH NOSTRIL
     Route: 045
     Dates: start: 20160303, end: 20160305
  4. FAMOTIDINE. [Concomitant]
     Active Substance: FAMOTIDINE
     Indication: PRODUCT USED FOR UNKNOWN INDICATION
     Route: 048
     Dates: start: 2015

REACTIONS (1)
  - Dizziness [Recovered/Resolved]

NARRATIVE: CASE EVENT DATE: 20160305
